FAERS Safety Report 9028355 (Version 1)
Quarter: 2013Q1

REPORT INFORMATION
  Report Type: Spontaneous
  Country: US (occurrence: US)
  Receive Date: 20130124
  Receipt Date: 20130124
  Transmission Date: 20140127
  Serious: No
  Sender: FDA-Public Use
  Company Number: US-BAUSCH-BL-2012-001134

PATIENT
  Age: 18 Year
  Sex: Male
  Weight: 70.37 kg

DRUGS (1)
  1. ALAWAY [Suspect]
     Indication: EYE ALLERGY
     Dosage: 1 DROP IN EACH EYE; ONCE
     Route: 047
     Dates: start: 20120914, end: 20120914

REACTIONS (2)
  - Eyelid oedema [Recovered/Resolved]
  - Foreign body sensation in eyes [Recovered/Resolved]
